FAERS Safety Report 24448779 (Version 2)
Quarter: 2024Q4

REPORT INFORMATION
  Report Type: Spontaneous
  Country: US (occurrence: US)
  Receive Date: 20241017
  Receipt Date: 20241023
  Transmission Date: 20250115
  Serious: Yes (Life-Threatening, Hospitalization, Other)
  Sender: CIPLA
  Company Number: US-MLMSERVICE-20240920-PI190947-00128-1

PATIENT

DRUGS (10)
  1. CYCLOPHOSPHAMIDE [Suspect]
     Active Substance: CYCLOPHOSPHAMIDE
     Indication: Metastases to bone
     Dosage: 1000 MILLIGRAM, EVERY 3 WEEKS (FIRST CYCLE (1,000 MG EVERY 3 WEEKS WAS ADMINISTERED INTRAVENOUSLY]
     Route: 042
  2. CYCLOPHOSPHAMIDE [Suspect]
     Active Substance: CYCLOPHOSPHAMIDE
     Indication: Metastases to lymph nodes
     Dosage: SECOND ROUND (1000MG)
     Route: 042
  3. CYCLOPHOSPHAMIDE [Suspect]
     Active Substance: CYCLOPHOSPHAMIDE
     Indication: Invasive ductal breast carcinoma
  4. DOXORUBICIN [Suspect]
     Active Substance: DOXORUBICIN
     Indication: Invasive ductal breast carcinoma
     Dosage: 100 MILLIGRAM, EVERY 3 WEEKS, FIRST CYCLE (100 MG EVERY 3 WEEKS WAS ADMINISTERED INTRAVENOUSLY)
     Route: 042
  5. DOXORUBICIN [Suspect]
     Active Substance: DOXORUBICIN
     Indication: Metastases to lymph nodes
     Dosage: SECOND ROUND (100 MG)
     Route: 042
  6. DOXORUBICIN [Suspect]
     Active Substance: DOXORUBICIN
     Indication: Metastases to bone
  7. METOPROLOL TARTRATE [Suspect]
     Active Substance: METOPROLOL TARTRATE
     Indication: Product used for unknown indication
     Dosage: 5 MILLIGRAM, EVERY 4 HOURS
     Route: 042
  8. METOPROLOL TARTRATE [Suspect]
     Active Substance: METOPROLOL TARTRATE
     Dosage: 12.5 MILLIGRAM, BID
     Route: 048
  9. METOPROLOL TARTRATE [Suspect]
     Active Substance: METOPROLOL TARTRATE
     Dosage: 75 MG 3 TIMES DAILY OVER THE NEXT WEEK.
     Route: 048
  10. CEFTRIAXONE [Suspect]
     Active Substance: CEFTRIAXONE
     Indication: Pneumonia
     Dosage: UNK
     Route: 065

REACTIONS (6)
  - Sinus tachycardia [Recovered/Resolved]
  - Ventricular tachycardia [Recovered/Resolved]
  - Ventricular extrasystoles [Recovered/Resolved]
  - Umbilical cord vascular disorder [Unknown]
  - Premature delivery [Unknown]
  - Exposure during pregnancy [Unknown]
